FAERS Safety Report 6776134-3 (Version None)
Quarter: 2010Q2

REPORT INFORMATION
  Report Type: 
  Country: None (occurrence: None)
  Receive Date: 20100615
  Receipt Date: 20100603
  Transmission Date: 20101027
  Serious: Yes (Hospitalization)
  Sender: FDA-Public Use
  Company Number: 2010-1724

PATIENT
  Age: 11 Year
  Sex: Male
  Weight: 29 kg

DRUGS (2)
  1. INCRELEX [Suspect]
     Indication: INSULIN-LIKE GROWTH FACTOR DECREASED
     Dates: start: 20080409, end: 20080619
  2. CONCERTA (METHYLPENIDATE HYDROCHLORIDE) [Concomitant]

REACTIONS (4)
  - DIPLOPIA [None]
  - HEADACHE [None]
  - INTRACRANIAL PRESSURE INCREASED [None]
  - NECK PAIN [None]
